FAERS Safety Report 18900171 (Version 2)
Quarter: 2021Q2

REPORT INFORMATION
  Report Type: Spontaneous
  Country: BR (occurrence: BR)
  Receive Date: 20210216
  Receipt Date: 20210401
  Transmission Date: 20210717
  Serious: No
  Sender: FDA-Public Use
  Company Number: BR-AMGEN-BRASP2021020538

PATIENT

DRUGS (2)
  1. NEULASTIM [Suspect]
     Active Substance: PEGFILGRASTIM
     Indication: PRODUCT USED FOR UNKNOWN INDICATION
     Dosage: 6 MILLIGRAM, AFTER CHEMO
     Route: 065
  2. NEULASTIM [Suspect]
     Active Substance: PEGFILGRASTIM
     Dosage: 6 MILLIGRAM, AFTER CHEMO
     Route: 065

REACTIONS (1)
  - Device deployment issue [Unknown]

NARRATIVE: CASE EVENT DATE: 20210115
